FAERS Safety Report 5780607-X (Version None)
Quarter: 2008Q2

REPORT INFORMATION
  Report Type: 
  Country: None (occurrence: None)
  Receive Date: 20080620
  Receipt Date: 20080611
  Transmission Date: 20081010
  Serious: Yes (Hospitalization, Other)
  Sender: FDA-Public Use
  Company Number: US-ELI_LILLY_AND_COMPANY-US200806002689

PATIENT
  Sex: Male

DRUGS (2)
  1. HUMALOG [Suspect]
     Dosage: UNK, UNK
     Dates: start: 20060101
  2. LANTUS [Concomitant]
     Dosage: UNK, UNK

REACTIONS (4)
  - BLOOD GLUCOSE INCREASED [None]
  - PULMONARY EMBOLISM [None]
  - RENAL FAILURE [None]
  - RETINOPATHY [None]
